FAERS Safety Report 4682604-4 (Version None)
Quarter: 2005Q2

REPORT INFORMATION
  Report Type: 
  Country: None (occurrence: None)
  Receive Date: 20050606
  Receipt Date: 20050105
  Transmission Date: 20051028
  Serious: Yes (Death, Life-Threatening, Hospitalization)
  Sender: FDA-Public Use
  Company Number: PHBS2005JP00516

PATIENT
  Age: 68 Year
  Sex: Male
  Weight: 69 kg

DRUGS (5)
  1. LOXONIN [Concomitant]
     Indication: POST HERPETIC NEURALGIA
     Dosage: 180 MG/DAY
     Route: 048
     Dates: start: 20041101, end: 20041210
  2. CYANOCOBALAMIN [Concomitant]
     Indication: POST HERPETIC NEURALGIA
     Dosage: 1500 UG/DAY
     Route: 048
     Dates: start: 20041101, end: 20041210
  3. GASTER D [Concomitant]
     Indication: GASTRIC DISORDER
     Dosage: 20 MG/DAY
     Route: 048
     Dates: start: 20041101, end: 20041210
  4. MARZULENE S [Concomitant]
     Indication: GASTRIC DISORDER
     Dosage: 1.5 G/DAY
     Route: 048
     Dates: start: 20041101, end: 20041210
  5. TEGRETOL [Suspect]
     Indication: POST HERPETIC NEURALGIA
     Dosage: 100 MG, BID
     Route: 048
     Dates: start: 20041112, end: 20041210

REACTIONS (23)
  - ALANINE AMINOTRANSFERASE INCREASED [None]
  - ASPARTATE AMINOTRANSFERASE INCREASED [None]
  - BLOOD CREATININE INCREASED [None]
  - BLOOD UREA INCREASED [None]
  - CEREBRAL HAEMORRHAGE [None]
  - DEPRESSED LEVEL OF CONSCIOUSNESS [None]
  - DERMATITIS EXFOLIATIVE [None]
  - DRUG HYPERSENSITIVITY [None]
  - ERYTHEMA [None]
  - HUMAN HERPES VIRUS 6 SEROLOGY POSITIVE [None]
  - HYPOTENSION [None]
  - LIVER FUNCTION TEST ABNORMAL [None]
  - MULTI-ORGAN FAILURE [None]
  - ORAL MUCOSAL ERUPTION [None]
  - PETECHIAE [None]
  - PLATELET COUNT DECREASED [None]
  - PYREXIA [None]
  - RASH [None]
  - RASH PAPULAR [None]
  - RED BLOOD CELL COUNT DECREASED [None]
  - RENAL IMPAIRMENT [None]
  - STAPHYLOCOCCAL SEPSIS [None]
  - WHITE BLOOD CELL COUNT INCREASED [None]
